FAERS Safety Report 19732299 (Version 2)
Quarter: 2021Q3

REPORT INFORMATION
  Report Type: Report from Study
  Country: None (occurrence: US)
  Receive Date: 20210820
  Receipt Date: 20210902
  Transmission Date: 20211014
  Serious: Yes (Other)
  Sender: FDA-Public Use
  Company Number: US-ABBVIE-21K-163-4038670-00

PATIENT
  Age: 56 Year
  Sex: Female
  Weight: 58.11 kg

DRUGS (3)
  1. RINVOQ [Suspect]
     Active Substance: UPADACITINIB
     Route: 048
     Dates: start: 20210817
  2. COVID?19 VACCINE [Concomitant]
     Indication: COVID-19 IMMUNISATION
     Dosage: JOHNSON AND JOHNSON
     Route: 030
     Dates: start: 20210505, end: 20210505
  3. RINVOQ [Suspect]
     Active Substance: UPADACITINIB
     Indication: RHEUMATOID ARTHRITIS
     Dosage: DRUG STARTED A YEAR AND A HALF AGO
     Route: 048
     Dates: start: 2020, end: 20210718

REACTIONS (13)
  - Blindness [Recovered/Resolved]
  - Gastric mucosa erythema [Unknown]
  - Dizziness [Recovered/Resolved]
  - Mobility decreased [Recovering/Resolving]
  - Musculoskeletal disorder [Recovering/Resolving]
  - Gastric ulcer haemorrhage [Unknown]
  - Haematemesis [Recovered/Resolved]
  - Faeces discoloured [Recovered/Resolved]
  - Loss of personal independence in daily activities [Recovering/Resolving]
  - Pain [Recovering/Resolving]
  - Fine motor skill dysfunction [Recovered/Resolved]
  - Haemoglobin decreased [Not Recovered/Not Resolved]
  - Rheumatoid arthritis [Recovering/Resolving]

NARRATIVE: CASE EVENT DATE: 20210708
